FAERS Safety Report 11542161 (Version 1)
Quarter: 2015Q3

REPORT INFORMATION
  Report Type: Spontaneous
  Country: TR (occurrence: TR)
  Receive Date: 20150923
  Receipt Date: 20150923
  Transmission Date: 20151125
  Serious: Yes (Life-Threatening)
  Sender: FDA-Public Use
  Company Number: TR-JNJFOC-20150914682

PATIENT
  Age: 71 Year
  Sex: Female
  Weight: 76 kg

DRUGS (8)
  1. GLUKOFEN [Concomitant]
     Active Substance: METFORMIN HYDROCHLORIDE
     Route: 065
  2. PREDNOL [Concomitant]
     Active Substance: METHYLPREDNISOLONE
     Route: 065
  3. INNOHEP [Concomitant]
     Active Substance: TINZAPARIN SODIUM
     Route: 065
  4. TELMISARTAN-HYDROCHLOROTHIAZIDE [Concomitant]
     Route: 065
  5. REMICADE [Suspect]
     Active Substance: INFLIXIMAB
     Indication: RHEUMATOID ARTHRITIS
     Route: 042
     Dates: start: 20110819, end: 201508
  6. MAGNESIUM [Concomitant]
     Active Substance: MAGNESIUM
     Route: 065
  7. DOXIUM [Concomitant]
     Route: 065
  8. FOLBIOL [Concomitant]
     Active Substance: FOLIC ACID
     Route: 065

REACTIONS (1)
  - Tuberculosis [Not Recovered/Not Resolved]

NARRATIVE: CASE EVENT DATE: 20150904
